FAERS Safety Report 13796048 (Version 1)
Quarter: 2017Q3

REPORT INFORMATION
  Report Type: Report from Study
  Country: HK (occurrence: HK)
  Receive Date: 20170726
  Receipt Date: 20170726
  Transmission Date: 20171127
  Serious: Yes (Hospitalization, Other)
  Sender: FDA-Public Use
  Company Number: HK-ARIAD PHARMACEUTICALS, INC-2017HK008579

PATIENT
  Age: 53 Year
  Sex: Female
  Weight: 46 kg

DRUGS (1)
  1. AP26113 [Suspect]
     Active Substance: BRIGATINIB
     Indication: LUNG ADENOCARCINOMA STAGE IV
     Dosage: UNK
     Route: 048

REACTIONS (1)
  - Pleural effusion [Recovered/Resolved]

NARRATIVE: CASE EVENT DATE: 20170718
